FAERS Safety Report 24864899 (Version 1)
Quarter: 2025Q1

REPORT INFORMATION
  Report Type: Spontaneous
  Country: US (occurrence: US)
  Receive Date: 20250121
  Receipt Date: 20250121
  Transmission Date: 20250409
  Serious: Yes (Other)
  Sender: STRIDES
  Company Number: US-STRIDES ARCOLAB LIMITED-2024SP013971

PATIENT
  Age: 7 Year
  Sex: Female

DRUGS (3)
  1. METHOTREXATE [Suspect]
     Active Substance: METHOTREXATE
     Indication: Uveitis
     Route: 048
  2. INFLIXIMAB [Suspect]
     Active Substance: INFLIXIMAB
     Indication: Uveitis
     Route: 065
  3. INFLIXIMAB [Suspect]
     Active Substance: INFLIXIMAB
     Route: 065

REACTIONS (1)
  - Drug ineffective for unapproved indication [Unknown]
